FAERS Safety Report 5181064-7 (Version None)
Quarter: 2007Q1

REPORT INFORMATION
  Report Type: 
  Country: None (occurrence: None)
  Receive Date: 20061212
  Receipt Date: 20061130
  Transmission Date: 20070707
  Serious: Yes (Disabling, Other)
  Sender: FDA-Public Use
  Company Number: 2006148355

PATIENT
  Age: 54 Year
  Sex: Female
  Weight: 99.7913 kg

DRUGS (7)
  1. PROCARDIA XL [Suspect]
     Indication: HYPERTENSION
     Dosage: 90 MG (90 MG, 1 IN 1 D), ORAL
     Route: 048
     Dates: start: 20061111
  2. HYZAAR/HCTZ                          (HYDROCHLOROTHIAZIDE, LOSARTAN PO [Concomitant]
  3. TOPROL-XL [Concomitant]
  4. METFORMIN HCL [Concomitant]
  5. GLYBURIDE [Concomitant]
  6. ACTOS [Concomitant]
  7. MAXAIR [Concomitant]

REACTIONS (2)
  - HEADACHE [None]
  - VISION BLURRED [None]
